FAERS Safety Report 16130976 (Version 10)
Quarter: 2020Q1

REPORT INFORMATION
  Report Type: Spontaneous
  Country: CA (occurrence: CA)
  Receive Date: 20190328
  Receipt Date: 20200123
  Transmission Date: 20200409
  Serious: Yes (Hospitalization, Other)
  Sender: FDA-Public Use
  Company Number: CA-PFIZER INC-2017548463

PATIENT
  Age: 47 Year
  Sex: Male

DRUGS (5)
  1. METFORMIN [Concomitant]
     Active Substance: METFORMIN HYDROCHLORIDE
     Dosage: 500 MG, 3X/DAY
     Route: 048
  2. SOMAVERT [Suspect]
     Active Substance: PEGVISOMANT
     Indication: ACROMEGALY
     Dosage: 20 MG, DAILY
     Route: 058
     Dates: start: 20171023, end: 201812
  3. SOMAVERT [Suspect]
     Active Substance: PEGVISOMANT
     Dosage: 30 MG, DAILY
     Route: 058
     Dates: start: 201904
  4. ANDROGEL [Concomitant]
     Active Substance: TESTOSTERONE
     Dosage: 1.62 %, 1X/DAY (2 PUMPS PER SHOULDER EVERY AM) (5G DAILY)
     Route: 061
  5. SANDOSTATIN [Concomitant]
     Active Substance: OCTREOTIDE ACETATE
     Dosage: 30 MG, EVERY 3 WEEKS
     Route: 030

REACTIONS (5)
  - Transient ischaemic attack [Unknown]
  - Influenza [Unknown]
  - Nervous system disorder [Not Recovered/Not Resolved]
  - Dysgeusia [Unknown]
  - Insulin-like growth factor abnormal [Unknown]

NARRATIVE: CASE EVENT DATE: 201712
